FAERS Safety Report 23668181 (Version 1)
Quarter: 2024Q1

REPORT INFORMATION
  Report Type: Spontaneous
  Country: IT (occurrence: IT)
  Receive Date: 20240325
  Receipt Date: 20240325
  Transmission Date: 20240409
  Serious: Yes (Hospitalization, Other)
  Sender: FDA-Public Use
  Company Number: IT-MYLANLABS-2024M1024620

PATIENT
  Sex: Female

DRUGS (4)
  1. LYRICA [Suspect]
     Active Substance: PREGABALIN
     Indication: Polyneuropathy
     Dosage: 225 MILLIGRAM, QD (75 MG IN THE MORNING AND 150 MG IN THE EVENING)
     Route: 065
     Dates: start: 20221231
  2. LYRICA [Suspect]
     Active Substance: PREGABALIN
     Dosage: 450 MILLIGRAM, QD
     Route: 065
  3. LYRICA [Suspect]
     Active Substance: PREGABALIN
     Dosage: 225 MILLIGRAM, QD
     Route: 065
  4. CYMBALTA [Concomitant]
     Active Substance: DULOXETINE HYDROCHLORIDE
     Dosage: UNK
     Route: 065

REACTIONS (4)
  - Hospitalisation [Unknown]
  - Diplopia [Not Recovered/Not Resolved]
  - Visual impairment [Not Recovered/Not Resolved]
  - Ataxia [Not Recovered/Not Resolved]
